FAERS Safety Report 4472238-9 (Version None)
Quarter: 2004Q4

REPORT INFORMATION
  Report Type: 
  Country: None (occurrence: None)
  Receive Date: 20041008
  Receipt Date: 20040930
  Transmission Date: 20050328
  Serious: Yes (Death)
  Sender: FDA-Public Use
  Company Number: 176808

PATIENT
  Age: 67 Year
  Sex: Female

DRUGS (6)
  1. AVONEX [Suspect]
     Indication: MULTIPLE SCLEROSIS
     Dosage: 30 MCG QW IM
     Route: 030
     Dates: start: 20020401, end: 20030607
  2. L-THYROXINE [Concomitant]
  3. AMBIEN [Concomitant]
  4. ISOSORBIDE [Concomitant]
  5. LIPITOR [Concomitant]
  6. ATENOLOL [Concomitant]

REACTIONS (2)
  - MYOCARDIAL INFARCTION [None]
  - RAYNAUD'S PHENOMENON [None]
